FAERS Safety Report 17876608 (Version 1)
Quarter: 2020Q2

REPORT INFORMATION
  Report Type: Spontaneous
  Country: US (occurrence: US)
  Receive Date: 20200609
  Receipt Date: 20200609
  Transmission Date: 20200714
  Serious: Yes (Hospitalization, Other)
  Sender: FDA-Public Use
  Company Number: US-BAYER-2020-102162

PATIENT
  Age: 48 Year
  Sex: Female
  Weight: 86.9 kg

DRUGS (2)
  1. BAYER LOW DOSE [Suspect]
     Active Substance: ASPIRIN
     Indication: THROMBOSIS PROPHYLAXIS
     Dosage: 81 MG, QD
     Route: 048
     Dates: start: 2000
  2. CENTRUM SILVER [ASCORBIC ACID;BETACAROTENE;BIOTIN;CALCIUM;CHROMIUM [Concomitant]
     Indication: NUTRITIONAL SUPPLEMENTATION
     Dosage: UNK
     Dates: start: 2009

REACTIONS (8)
  - Anaemia [Not Recovered/Not Resolved]
  - Faeces discoloured [None]
  - Seasonal allergy [Not Recovered/Not Resolved]
  - Migraine [None]
  - Dizziness [Not Recovered/Not Resolved]
  - Glaucoma [Not Recovered/Not Resolved]
  - Cataract [None]
  - Hypertension [Not Recovered/Not Resolved]

NARRATIVE: CASE EVENT DATE: 2003
